FAERS Safety Report 17032139 (Version 1)
Quarter: 2019Q4

REPORT INFORMATION
  Report Type: Spontaneous
  Country: US (occurrence: US)
  Receive Date: 20191014
  Receipt Date: 20191014
  Transmission Date: 20200122
  Serious: No
  Sender: FDA-Public Use
  Company Number: None

PATIENT
  Age: 53 Year
  Sex: Female

DRUGS (1)
  1. HARVONI [Suspect]
     Active Substance: LEDIPASVIR\SOFOSBUVIR
     Dosage: ?          OTHER DOSE:90 400;?
     Route: 048
     Dates: start: 201909

REACTIONS (5)
  - Fatigue [None]
  - Condition aggravated [None]
  - Headache [None]
  - Dyspnoea [None]
  - Arthralgia [None]

NARRATIVE: CASE EVENT DATE: 20190920
